FAERS Safety Report 9289367 (Version 2)
Quarter: 2013Q3

REPORT INFORMATION
  Report Type: Spontaneous
  Country: US (occurrence: US)
  Receive Date: 20130514
  Receipt Date: 20130708
  Transmission Date: 20140515
  Serious: Yes (Death, Hospitalization)
  Sender: FDA-Public Use
  Company Number: US-PFIZER INC-2013146864

PATIENT
  Age: 61 Year
  Sex: Female
  Weight: 58.96 kg

DRUGS (3)
  1. LIPITOR [Suspect]
     Indication: BLOOD CHOLESTEROL INCREASED
     Dosage: 10 MG, DAILY
     Dates: start: 2003
  2. PREDNISONE [Concomitant]
     Dosage: 5 MG, UNK
  3. PROGRAF [Concomitant]
     Dosage: UNK

REACTIONS (2)
  - Infection [Fatal]
  - Skin ulcer [Not Recovered/Not Resolved]
